FAERS Safety Report 8683844 (Version 5)
Quarter: 2012Q4

REPORT INFORMATION
  Report Type: 
  Country: BR (occurrence: BR)
  Receive Date: 20120726
  Receipt Date: 20121015
  Transmission Date: 20130627
  Serious: Yes (Hospitalization, Other)
  Sender: FDA-Public Use
  Company Number: BR-PFIZER INC-2012177605

PATIENT
  Age: 54 Year
  Sex: Female

DRUGS (14)
  1. FRONTAL [Suspect]
     Indication: DEPRESSION
     Dosage: 1 mg, 1x/day
     Route: 048
  2. FRONTAL [Suspect]
     Dosage: 2.5 mg (two tablets of 1mg and a half), 3x/day
     Route: 048
  3. FRONTAL [Suspect]
     Dosage: 1 mg in the morning, 1mg in the afternoon and 2mg at night
  4. FRONTAL XR [Suspect]
     Dosage: UNK
     Dates: start: 2012
  5. PAROXETINE HYDROCHLORIDE [Suspect]
     Dosage: 20 mg, 2x/day
     Route: 048
  6. ALPRAZOLAM [Suspect]
     Indication: ANXIETY
     Dosage: 1 mg, 3x/day
     Route: 048
     Dates: start: 2006
  7. RIVOTRIL [Suspect]
     Dosage: UNK
  8. DONAREN [Concomitant]
     Dosage: 50 mg, 1x/day
  9. AAS INFANTIL [Concomitant]
     Indication: COAGULOPATHY
     Dosage: UNK, 1x/day
     Dates: start: 2005
  10. SERTRALINE [Concomitant]
     Indication: ANXIETY
     Dosage: 50 mg, 2x/day (one tablet in the morning and one tablet at night)
  11. SERTRALINE [Concomitant]
     Dosage: UNK, 1x/day
  12. LOSARTAN [Concomitant]
     Indication: HYPERTENSION
     Dosage: UNK, 1x/day
     Dates: start: 2011
  13. POLIVITAMINE [Concomitant]
     Dosage: UNK, 1x/day
  14. VASOGARD [Concomitant]
     Dosage: UNK, 3x/day (every 8 hours)
     Dates: start: 20120522

REACTIONS (17)
  - Panic disorder [Unknown]
  - Peripheral arterial occlusive disease [Unknown]
  - Lipoma [Unknown]
  - Neoplasm malignant [Unknown]
  - Paralysis [Unknown]
  - Incorrect dose administered [Unknown]
  - Drug dependence [Unknown]
  - Arterial occlusive disease [Unknown]
  - Emotional disorder [Unknown]
  - Anxiety [Not Recovered/Not Resolved]
  - Depression [Unknown]
  - Aphasia [Unknown]
  - Feeling abnormal [Unknown]
  - Affect lability [Unknown]
  - Abdominal pain [Unknown]
  - Incorrect drug administration duration [Unknown]
  - Drug ineffective [Unknown]
